FAERS Safety Report 7483654-5 (Version None)
Quarter: 2011Q2

REPORT INFORMATION
  Report Type: 
  Country: None (occurrence: None)
  Receive Date: 20110517
  Receipt Date: 20110515
  Transmission Date: 20111010
  Serious: Yes (Other)
  Sender: FDA-Public Use
  Company Number: US-PFIZER INC-2011103988

PATIENT
  Sex: Male

DRUGS (1)
  1. ADVIL LIQUI-GELS [Suspect]
     Indication: ABDOMINAL PAIN UPPER
     Dosage: UNK

REACTIONS (4)
  - EYE SWELLING [None]
  - RASH MACULAR [None]
  - HEADACHE [None]
  - BLISTER [None]
